FAERS Safety Report 9119511 (Version 1)
Quarter: 2013Q1

REPORT INFORMATION
  Report Type: Spontaneous
  Country: US (occurrence: US)
  Receive Date: 20130226
  Receipt Date: 20130226
  Transmission Date: 20140127
  Serious: No
  Sender: FDA-Public Use
  Company Number: US-PFIZER INC-2013066532

PATIENT
  Age: 11 Month
  Sex: Male

DRUGS (2)
  1. CHILDRENS ADVIL [Suspect]
     Dosage: UNK
  2. CHILDRENS ADVIL [Suspect]
     Dosage: 2 TEASPOONS, UNK

REACTIONS (2)
  - Dyskinesia [Unknown]
  - Incorrect dose administered [Unknown]
